FAERS Safety Report 19001854 (Version 1)
Quarter: 2021Q1

REPORT INFORMATION
  Report Type: Spontaneous
  Country: US (occurrence: US)
  Receive Date: 20210312
  Receipt Date: 20210312
  Transmission Date: 20210420
  Serious: Yes (Hospitalization)
  Sender: FDA-Public Use
  Company Number: US-ELI_LILLY_AND_COMPANY-US202103002403

PATIENT
  Age: 58 Year
  Sex: Male

DRUGS (2)
  1. HUMALOG [Suspect]
     Active Substance: INSULIN LISPRO
     Indication: PRODUCT USED FOR UNKNOWN INDICATION
     Dosage: 1?3 U, PRN (PER MEAL)
     Route: 065
     Dates: start: 2009, end: 202102
  2. INSULIN LISPRO [Suspect]
     Active Substance: INSULIN LISPRO
     Indication: PRODUCT USED FOR UNKNOWN INDICATION
     Dosage: 8?12 U, EACH EVENING (AT NIGHT TIME)
     Route: 065
     Dates: start: 202102

REACTIONS (9)
  - Depression [Unknown]
  - Tremor [Unknown]
  - Blood glucose increased [Unknown]
  - Anxiety [Unknown]
  - Intervertebral disc disorder [Unknown]
  - Nerve compression [Unknown]
  - Drug ineffective [Unknown]
  - Cerebrovascular accident [Unknown]
  - Pain in extremity [Not Recovered/Not Resolved]

NARRATIVE: CASE EVENT DATE: 201703
